FAERS Safety Report 16227793 (Version 1)
Quarter: 2019Q2

REPORT INFORMATION
  Report Type: Spontaneous
  Country: US (occurrence: US)
  Receive Date: 20190422
  Receipt Date: 20190422
  Transmission Date: 20190711
  Serious: Yes (Disabling)
  Sender: FDA-Public Use
  Company Number: None

PATIENT
  Age: 64 Year
  Sex: Female
  Weight: 76.5 kg

DRUGS (6)
  1. DULOXETINE HCL DR 20MG CAP [Suspect]
     Active Substance: DULOXETINE HYDROCHLORIDE
     Indication: GENERALISED ANXIETY DISORDER
     Dosage: ?          QUANTITY:21 TABLET(S);?
     Route: 048
     Dates: start: 20190105
  2. ATENOLOL. [Concomitant]
     Active Substance: ATENOLOL
  3. BIOTIN [Concomitant]
     Active Substance: BIOTIN
  4. MULTI VITAMIN [Concomitant]
     Active Substance: VITAMINS
  5. NEXIUM [Concomitant]
     Active Substance: ESOMEPRAZOLE MAGNESIUM
  6. LORAZEPAM. [Concomitant]
     Active Substance: LORAZEPAM

REACTIONS (4)
  - Headache [None]
  - Nausea [None]
  - Crying [None]
  - Withdrawal syndrome [None]

NARRATIVE: CASE EVENT DATE: 20190401
